FAERS Safety Report 4878349-8 (Version None)
Quarter: 2005Q4

REPORT INFORMATION
  Report Type: 
  Country: None (occurrence: None)
  Receive Date: 20051206
  Receipt Date: 20050906
  Transmission Date: 20060501
  Serious: No
  Sender: FDA-Public Use
  Company Number: USA0509107308

PATIENT
  Sex: Female

DRUGS (4)
  1. CYMBALTA [Suspect]
     Indication: MAJOR DEPRESSION
     Dosage: 30 MG DAY
     Dates: start: 20050101
  2. WELLBUTRIN [Concomitant]
  3. SYNTHROID [Concomitant]
  4. PREMARIN [Concomitant]

REACTIONS (5)
  - BODY TEMPERATURE INCREASED [None]
  - FEELING OF BODY TEMPERATURE CHANGE [None]
  - HEADACHE [None]
  - HEAT EXHAUSTION [None]
  - HYPERHIDROSIS [None]
